FAERS Safety Report 9533012 (Version 1)
Quarter: 2013Q2

REPORT INFORMATION
  Report Type: Spontaneous
  Country: US (occurrence: None)
  Receive Date: 20130418
  Receipt Date: 20130418
  Transmission Date: 20140414
  Serious: Yes (Other)
  Sender: FDA-Public Use
  Company Number: 2012PROUSA02368

PATIENT
  Age: 83 Year
  Sex: Male
  Weight: 97.5 kg

DRUGS (7)
  1. PROVENGE [Suspect]
     Indication: PROSTATE CANCER METASTATIC
     Dosage: SINGLE
     Route: 042
     Dates: start: 20121115, end: 20121115
  2. ELIGARD (LEUPRORELIN ACETATE) [Concomitant]
  3. BICALUTAMIDE [Concomitant]
  4. MEPROBAMATE [Concomitant]
  5. PROTONIX (PANTOPRAZOLE SODIUM SESFQUIHYDRATE) [Concomitant]
  6. QUALAQUIN (QUININE SULFATE) [Concomitant]
  7. CALCIUM CARBONATE (CALCIUM CARBONATE) [Concomitant]

REACTIONS (5)
  - Anxiety [None]
  - Malaise [None]
  - Blood pressure increased [None]
  - Nasopharyngitis [None]
  - Cough [None]
